FAERS Safety Report 8440569-3 (Version None)
Quarter: 2012Q2

REPORT INFORMATION
  Report Type: 
  Country: None (occurrence: None)
  Receive Date: 20120615
  Receipt Date: 20120606
  Transmission Date: 20120825
  Serious: Yes (Other)
  Sender: FDA-Public Use
  Company Number: TW-BRISTOL-MYERS SQUIBB COMPANY-16687857

PATIENT
  Age: 52 Year
  Sex: Female

DRUGS (3)
  1. WARFARIN SODIUM [Suspect]
     Route: 048
  2. DIGOXIN [Interacting]
  3. FUROSEMIDE [Interacting]

REACTIONS (2)
  - DRUG INTERACTION [None]
  - LEUKOCYTOCLASTIC VASCULITIS [None]
